FAERS Safety Report 12144006 (Version 1)
Quarter: 2016Q1

REPORT INFORMATION
  Report Type: Spontaneous
  Country: ES (occurrence: ES)
  Receive Date: 20160304
  Receipt Date: 20160304
  Transmission Date: 20160526
  Serious: Yes (Hospitalization, Other)
  Sender: FDA-Public Use
  Company Number: ES-ASTRAZENECA-2016SE22273

PATIENT
  Age: 62 Year
  Sex: Male
  Weight: 100 kg

DRUGS (5)
  1. VALPROIC ACID. [Interacting]
     Active Substance: VALPROIC ACID
     Indication: GENERALISED TONIC-CLONIC SEIZURE
     Dosage: CONTINUOUS PERFUSION OF 2,400 MG/24 H
     Route: 042
  2. VALPROIC ACID. [Interacting]
     Active Substance: VALPROIC ACID
     Indication: GENERALISED TONIC-CLONIC SEIZURE
     Dosage: 400 MG LOADING DOSE
     Route: 042
  3. MEROPENEM. [Interacting]
     Active Substance: MEROPENEM
     Indication: MENINGITIS
     Route: 042
  4. MEROPENEM. [Interacting]
     Active Substance: MEROPENEM
     Indication: CELLULITIS ORBITAL
     Route: 042
  5. LINEZOLID. [Suspect]
     Active Substance: LINEZOLID
     Indication: CELLULITIS ORBITAL
     Route: 042

REACTIONS (2)
  - Drug interaction [Unknown]
  - Generalised tonic-clonic seizure [Recovered/Resolved]
